FAERS Safety Report 6533026-2 (Version None)
Quarter: 2010Q1

REPORT INFORMATION
  Report Type: 
  Country: None (occurrence: None)
  Receive Date: 20100105
  Receipt Date: 20091223
  Transmission Date: 20100710
  Serious: Yes (Hospitalization)
  Sender: FDA-Public Use
  Company Number: TPA2009A02761

PATIENT
  Age: 66 Year
  Sex: Female
  Weight: 84.369 kg

DRUGS (5)
  1. KAPIDEX [Suspect]
     Indication: GASTROOESOPHAGEAL REFLUX DISEASE
     Dosage: 30 MG, 2 IN 1 D, PER ORAL
     Route: 048
     Dates: start: 20090815, end: 20090829
  2. SYNTHROID [Concomitant]
  3. GLIPIZIDE / METFORMIN (METFORMIN GLIBENCLAMIDE) [Concomitant]
  4. ACTOS [Concomitant]
  5. CRESTOR [Concomitant]

REACTIONS (1)
  - DERMATITIS EXFOLIATIVE [None]
